FAERS Safety Report 9298518 (Version 2)
Quarter: 2013Q3

REPORT INFORMATION
  Report Type: Report from Study
  Country: ES (occurrence: ES)
  Receive Date: 20130520
  Receipt Date: 20130925
  Transmission Date: 20140515
  Serious: Yes (Hospitalization)
  Sender: FDA-Public Use
  Company Number: ES-ELI_LILLY_AND_COMPANY-ES201305003994

PATIENT
  Age: 58 Year
  Sex: Female
  Weight: 57 kg

DRUGS (7)
  1. GEMCITABINE HYDROCHLORIDE [Suspect]
     Indication: LUNG NEOPLASM MALIGNANT
     Dosage: 1987 MG, OTHER
     Route: 042
     Dates: start: 20130426, end: 20130426
  2. CISPLATIN [Suspect]
     Indication: LUNG NEOPLASM MALIGNANT
     Dosage: 119.25 MG, OTHER
     Route: 042
     Dates: start: 20130426, end: 20130426
  3. LORAZEPAM [Concomitant]
     Dosage: 1 MG, 24H
     Dates: start: 20130304
  4. FENTANYL [Concomitant]
     Dosage: 25MCG/72H
     Dates: start: 20130312
  5. ALPRAZOLAM [Concomitant]
     Dosage: 0.25 MG, 24H
     Dates: start: 20130327
  6. DEXKETOPROFEN [Concomitant]
     Dosage: 25 MG, 8H
     Dates: start: 20030403
  7. OMEPRAZOL [Concomitant]
     Dosage: 20 MG, 24H
     Dates: start: 20130403

REACTIONS (1)
  - Abdominal pain upper [Recovered/Resolved with Sequelae]
